FAERS Safety Report 16399027 (Version 1)
Quarter: 2019Q2

REPORT INFORMATION
  Report Type: Report from Study
  Country: US (occurrence: US)
  Receive Date: 20190606
  Receipt Date: 20190606
  Transmission Date: 20190711
  Serious: Yes (Hospitalization)
  Sender: FDA-Public Use
  Company Number: US-PFIZER INC-2019239358

PATIENT
  Age: 7 Year
  Sex: Male
  Weight: 28.5 kg

DRUGS (9)
  1. METHOTREXATE SODIUM. [Suspect]
     Active Substance: METHOTREXATE SODIUM
     Indication: ACUTE LYMPHOCYTIC LEUKAEMIA
     Dosage: 12 MG, CYCLIC (DELAYED INTENSIFICATION DAYS 1, 29, 36)
     Route: 037
     Dates: start: 20180910
  2. DOXORUBICIN HCL [Suspect]
     Active Substance: DOXORUBICIN HYDROCHLORIDE
     Indication: ACUTE LYMPHOCYTIC LEUKAEMIA
     Dosage: 24 MG, CYCLIC (DELAYED INTENSIFICATION WEEKLY X 3 WEEKS)
     Route: 042
     Dates: start: 20190201
  3. ASPARAGINASE [Suspect]
     Active Substance: ASPARAGINASE
     Indication: ACUTE LYMPHOCYTIC LEUKAEMIA
     Dosage: 24.750 IU, UNK
     Route: 042
     Dates: start: 20181024
  4. CYCLOPHOSPHAMIDE. [Suspect]
     Active Substance: CYCLOPHOSPHAMIDE
     Indication: ACUTE LYMPHOCYTIC LEUKAEMIA
     Dosage: 990 MG, CYCLIC (DELAYED INTENSIFICATION DAY 29)
     Route: 042
     Dates: start: 20180910
  5. VINCRISTINE SULFATE. [Suspect]
     Active Substance: VINCRISTINE SULFATE
     Indication: ACUTE LYMPHOCYTIC LEUKAEMIA
     Dosage: 1.5 MG, CYCLIC (DELAYED INTENSIFICATION DAYS 1, 8, 15, 43, 50)
     Route: 042
     Dates: start: 20180924
  6. INCB018424 [Suspect]
     Active Substance: RUXOLITINIB
     Indication: ACUTE LYMPHOCYTIC LEUKAEMIA
     Dosage: 50 MG, CYCLIC (BID X14 DAYS)
     Dates: start: 20180910
  7. DEXAMETHASONE. [Suspect]
     Active Substance: DEXAMETHASONE
     Indication: ACUTE LYMPHOCYTIC LEUKAEMIA
     Dosage: 4.75 MG, CYCLIC (BID DELAYED INTENSIFICATION DAYS 1-7 AND 15-21)
     Route: 048
     Dates: start: 20190201
  8. CYTARABINE. [Suspect]
     Active Substance: CYTARABINE
     Indication: ACUTE LYMPHOCYTIC LEUKAEMIA
     Dosage: 74 MG, CYCLIC (DELAYED INTENSIFICATION DAYS 29-32 AND 36-39)
     Route: 042
     Dates: start: 20180910
  9. THIOGUANINE [Suspect]
     Active Substance: THIOGUANINE
     Indication: ACUTE LYMPHOCYTIC LEUKAEMIA
     Dosage: 60 MG, CYCLIC (QD DELAYED INTENSIFICATION DAYS 29-42)
     Route: 048
     Dates: start: 20190308

REACTIONS (1)
  - Febrile neutropenia [Recovered/Resolved]

NARRATIVE: CASE EVENT DATE: 20190407
